FAERS Safety Report 22099302 (Version 1)
Quarter: 2023Q1

REPORT INFORMATION
  Report Type: Spontaneous
  Country: US (occurrence: None)
  Receive Date: 20230315
  Receipt Date: 20230315
  Transmission Date: 20230417
  Serious: Yes (Hospitalization, Disabling)
  Sender: FDA-Public Use
  Company Number: None

PATIENT
  Age: 70 Year
  Sex: Male

DRUGS (1)
  1. ABIRATERONE [Suspect]
     Active Substance: ABIRATERONE
     Dosage: FREQUENCY : DAILY;?
     Route: 048

REACTIONS (9)
  - Toe amputation [None]
  - Limb injury [None]
  - Localised infection [None]
  - Weight decreased [None]
  - Nausea [None]
  - Diarrhoea [None]
  - Chest pain [None]
  - Therapy interrupted [None]
  - Myocardial infarction [None]

NARRATIVE: CASE EVENT DATE: 20230126
